FAERS Safety Report 7325616-4 (Version None)
Quarter: 2011Q1

REPORT INFORMATION
  Report Type: 
  Country: None (occurrence: None)
  Receive Date: 20110302
  Receipt Date: 20110224
  Transmission Date: 20110831
  Serious: Yes (Other)
  Sender: FDA-Public Use
  Company Number: US-PFIZER INC-2010170487

PATIENT
  Sex: Female

DRUGS (1)
  1. CHANTIX [Suspect]
     Indication: SMOKING CESSATION THERAPY
     Dosage: STARTER PACK
     Route: 048
     Dates: start: 20080201, end: 20080301

REACTIONS (4)
  - LOSS OF CONSCIOUSNESS [None]
  - DEPRESSION [None]
  - MENTAL STATUS CHANGES [None]
  - GENERALISED ANXIETY DISORDER [None]
